FAERS Safety Report 25860072 (Version 1)
Quarter: 2025Q3

REPORT INFORMATION
  Report Type: Spontaneous
  Country: BR (occurrence: BR)
  Receive Date: 20250929
  Receipt Date: 20250929
  Transmission Date: 20251021
  Serious: Yes (Death)
  Sender: NOVARTIS
  Company Number: BR-002147023-NVSC2025BR150375

PATIENT
  Age: 83 Year
  Sex: Male

DRUGS (1)
  1. DIOVAN [Suspect]
     Active Substance: VALSARTAN
     Indication: Product used for unknown indication
     Route: 065

REACTIONS (4)
  - Parkinson^s disease [Fatal]
  - Cardiac failure [Fatal]
  - Illness [Fatal]
  - Intentional dose omission [Fatal]

NARRATIVE: CASE EVENT DATE: 20250908
